FAERS Safety Report 7625861-4 (Version None)
Quarter: 2011Q3

REPORT INFORMATION
  Report Type: 
  Country: None (occurrence: None)
  Receive Date: 20110713
  Receipt Date: 20110628
  Transmission Date: 20111222
  Serious: Yes (Hospitalization)
  Sender: FDA-Public Use
  Company Number: DSA_47052_2011

PATIENT
  Age: 70 Year
  Sex: Female

DRUGS (6)
  1. CARDURA [Suspect]
     Indication: HYPERTENSION
     Dosage: (4 MG QD ORAL)
     Route: 048
     Dates: start: 20050131, end: 20100131
  2. TENORMIN [Suspect]
     Indication: HYPERTENSION
     Dosage: (100 MG QD ORAL) ; (50 MG QD ORAL)
     Route: 048
     Dates: start: 20030131, end: 20100131
  3. ENALAPRIL MALEATE AND HYDROCHLOROTHIAZIDE [Suspect]
     Indication: HYPERTENSION
     Dosage: (20 MG + 12.5 MG DAILY ORAL)
     Route: 048
     Dates: start: 20070131, end: 20100131
  4. ENALAPRIL MALEATE [Suspect]
     Indication: HYPERTENSION
     Dosage: (5 MG QD ORAL) ; (DF ORAL)
     Route: 048
     Dates: start: 20030131, end: 20100131
  5. OSIPINE (OSIPINE - BARNIDIPINE HCL) 10 MG (NOT SPECIFIED) [Suspect]
     Indication: HYPERTENSION
     Dosage: (10 MG QD ORAL)
     Route: 048
     Dates: start: 20070131, end: 20070131
  6. ATORVASTATIN CALCIUM [Concomitant]

REACTIONS (4)
  - SYNCOPE [None]
  - HEAD INJURY [None]
  - HYPOTENSION [None]
  - FALL [None]
